FAERS Safety Report 16709965 (Version 1)
Quarter: 2019Q3

REPORT INFORMATION
  Report Type: Other
  Country: CA (occurrence: CA)
  Receive Date: 20190816
  Receipt Date: 20190816
  Transmission Date: 20191004
  Serious: Yes (Death)
  Sender: FDA-Public Use
  Company Number: CA-PFIZER INC-2019348646

PATIENT
  Age: 4 Year
  Sex: Male

DRUGS (6)
  1. CYTARABINE. [Suspect]
     Active Substance: CYTARABINE
     Indication: T-CELL TYPE ACUTE LEUKAEMIA
     Dosage: UNK
     Route: 065
  2. DAUNOMYCIN [DAUNORUBICIN] [Suspect]
     Active Substance: DAUNORUBICIN
     Indication: T-CELL TYPE ACUTE LEUKAEMIA
     Dosage: UNK
     Route: 065
  3. METHOTREXATE SODIUM. [Suspect]
     Active Substance: METHOTREXATE SODIUM
     Indication: T-CELL TYPE ACUTE LEUKAEMIA
     Dosage: UNK
     Route: 065
  4. ASPARAGINASE [Suspect]
     Active Substance: ASPARAGINASE
     Indication: T-CELL TYPE ACUTE LEUKAEMIA
     Dosage: UNK
     Route: 065
  5. PREDNISONE. [Suspect]
     Active Substance: PREDNISONE
     Indication: T-CELL TYPE ACUTE LEUKAEMIA
     Dosage: UNK
     Route: 065
  6. VINCRISTINE SULFATE. [Suspect]
     Active Substance: VINCRISTINE SULFATE
     Indication: T-CELL TYPE ACUTE LEUKAEMIA
     Dosage: UNK
     Route: 065

REACTIONS (2)
  - Septic shock [Fatal]
  - Pancytopenia [Fatal]
